FAERS Safety Report 8879950 (Version 1)
Quarter: 2012Q4

REPORT INFORMATION
  Report Type: 
  Country: US (occurrence: US)
  Receive Date: 20121101
  Receipt Date: 20121101
  Transmission Date: 20130627
  Serious: No
  Sender: FDA-Public Use
  Company Number: US-009507513-1210USA008055

PATIENT
  Sex: Female

DRUGS (4)
  1. JANUMET [Suspect]
     Indication: DIABETES MELLITUS
     Dosage: 50/1000mg, bid
     Route: 048
     Dates: start: 201208
  2. LOSARTAN POTASSIUM [Concomitant]
  3. AMLODIPINE [Concomitant]
     Dosage: UNK
  4. GLIPIZIDE [Concomitant]

REACTIONS (5)
  - Hot flush [Unknown]
  - Hyperhidrosis [Unknown]
  - Pigmentation disorder [Unknown]
  - Headache [Unknown]
  - Pharyngeal oedema [Unknown]
